FAERS Safety Report 6694941-2 (Version None)
Quarter: 2010Q2

REPORT INFORMATION
  Report Type: 
  Country: None (occurrence: None)
  Receive Date: 20100423
  Receipt Date: 20100415
  Transmission Date: 20101027
  Serious: Yes (Other)
  Sender: FDA-Public Use
  Company Number: PT-B.I. PHARMACEUTICALS,INC./RIDGEFIELD-2010-DE-02181GD

PATIENT
  Age: 25 Year
  Sex: Female

DRUGS (8)
  1. ALTEPLASE [Suspect]
     Indication: LIVEDO RETICULARIS
     Dosage: 10 MG
  2. DIPYRIDAMOLE [Suspect]
     Indication: LIVEDO RETICULARIS
     Dosage: 225 MG
  3. ASPIRIN [Suspect]
     Indication: LIVEDO RETICULARIS
     Dosage: 100 MG
  4. PENTOXIFYLLINE [Suspect]
     Indication: LIVEDO RETICULARIS
     Dosage: 1200 MG
  5. ENOXAPARIN SODIUM [Suspect]
     Indication: LIVEDO RETICULARIS
     Dosage: 120 MG
  6. ALPROSTADIL [Suspect]
     Indication: LIVEDO RETICULARIS
     Dosage: 60 MCG
  7. INTRAVENOUS IMMUNOGLOBULINS [Concomitant]
     Indication: LIVEDO RETICULARIS
     Dosage: 0.5 G/KG FOR 5 DAYS EVERY 4 WEEKS
     Route: 042
  8. PREDNISOLONE [Concomitant]
     Indication: LIVEDO RETICULARIS
     Dosage: 50 MG

REACTIONS (1)
  - MUSCLE HAEMORRHAGE [None]
